FAERS Safety Report 10452203 (Version 6)
Quarter: 2016Q1

REPORT INFORMATION
  Report Type: Report from Study
  Country: JP (occurrence: JP)
  Receive Date: 20140915
  Receipt Date: 20160209
  Transmission Date: 20160525
  Serious: Yes (Other)
  Sender: FDA-Public Use
  Company Number: PHHY2013JP091125

PATIENT
  Age: 24 Year
  Sex: Male

DRUGS (54)
  1. CLOZARIL [Suspect]
     Active Substance: CLOZAPINE
     Dosage: 75 MG, QD
     Route: 048
     Dates: start: 20130117, end: 20130118
  2. CLOZARIL [Suspect]
     Active Substance: CLOZAPINE
     Dosage: 200 MG, QD
     Route: 048
     Dates: start: 20130130, end: 20130221
  3. CLOZARIL [Suspect]
     Active Substance: CLOZAPINE
     Dosage: 350 MG, QD
     Route: 048
     Dates: start: 20140111, end: 20140807
  4. QUAZEPAM. [Suspect]
     Active Substance: QUAZEPAM
     Indication: SCHIZOPHRENIA
     Dosage: 30 MG, QD
     Route: 048
     Dates: start: 20130128, end: 20131120
  5. CLONAZEPAM. [Concomitant]
     Active Substance: CLONAZEPAM
     Indication: SCHIZOPHRENIA
     Dosage: 2 MG, QD
     Route: 048
  6. HORIZON [Concomitant]
     Active Substance: DIAZEPAM
     Dosage: 10 MG, QD
     Route: 048
     Dates: start: 20140228, end: 20140320
  7. CLOZARIL [Suspect]
     Active Substance: CLOZAPINE
     Dosage: 225 MG, QD
     Route: 048
     Dates: start: 20150107
  8. LIMAS [Suspect]
     Active Substance: LITHIUM CARBONATE
     Indication: SCHIZOPHRENIA
     Dosage: 900 MG, QD
     Route: 048
     Dates: start: 20130208, end: 20130613
  9. LENDORMIN DAINIPPO [Concomitant]
     Active Substance: BROTIZOLAM
     Indication: SCHIZOPHRENIA
     Dosage: 0.25 MG, QD
     Route: 048
     Dates: start: 20130412, end: 20130904
  10. LUNESTA [Concomitant]
     Active Substance: ESZOPICLONE
     Indication: SCHIZOPHRENIA
     Dosage: 1 MG, QD
     Route: 048
     Dates: start: 20130513, end: 20130904
  11. LEXOTAN [Concomitant]
     Active Substance: BROMAZEPAM
     Indication: SCHIZOPHRENIA
     Dosage: 5 MG, QD
     Route: 048
     Dates: start: 20140902
  12. DEPAS [Concomitant]
     Active Substance: ETIZOLAM
     Dosage: 2 MG, QD
     Route: 048
     Dates: start: 20140404, end: 20140901
  13. CLOZARIL [Suspect]
     Active Substance: CLOZAPINE
     Dosage: 300 MG, QD
     Route: 048
     Dates: start: 20130326, end: 20130418
  14. CLOZARIL [Suspect]
     Active Substance: CLOZAPINE
     Dosage: 350 MG, QD
     Route: 048
     Dates: start: 20141022, end: 20141104
  15. CLOZARIL [Suspect]
     Active Substance: CLOZAPINE
     Dosage: 325 MG, QD
     Route: 048
     Dates: start: 20141105, end: 20141118
  16. CLOZARIL [Suspect]
     Active Substance: CLOZAPINE
     Dosage: 250 MG, QD
     Route: 048
     Dates: start: 20141225, end: 20150106
  17. LIMAS [Suspect]
     Active Substance: LITHIUM CARBONATE
     Dosage: 800 MG, QD
     Route: 048
     Dates: start: 20130614, end: 20130704
  18. LEUCON /00300201/ [Suspect]
     Active Substance: ADENINE
     Indication: PROPHYLAXIS
  19. FLUNITRAZEPAM [Concomitant]
     Active Substance: FLUNITRAZEPAM
     Indication: SCHIZOPHRENIA
     Dosage: 2 MG, QD
     Route: 048
     Dates: start: 20130411, end: 20130516
  20. CLOZARIL [Suspect]
     Active Substance: CLOZAPINE
     Dosage: 125 MG, QD
     Route: 048
     Dates: start: 20130121, end: 20130123
  21. CLOZARIL [Suspect]
     Active Substance: CLOZAPINE
     Dosage: 250 MG, QD
     Route: 048
     Dates: start: 20130301, end: 20130307
  22. CLOZARIL [Suspect]
     Active Substance: CLOZAPINE
     Dosage: 275 MG, QD
     Route: 048
     Dates: start: 20130308, end: 20130325
  23. CLOZARIL [Suspect]
     Active Substance: CLOZAPINE
     Dosage: 275 MG, QD
     Route: 048
  24. LIMAS [Suspect]
     Active Substance: LITHIUM CARBONATE
     Dosage: 600 MG, QD
     Route: 048
     Dates: start: 20130712
  25. CLARITIN [Suspect]
     Active Substance: LORATADINE
     Indication: SEASONAL ALLERGY
     Dosage: 10 MG, QD
     Route: 048
     Dates: start: 20130411
  26. QUETIAPINE [Concomitant]
     Active Substance: QUETIAPINE
     Indication: SCHIZOPHRENIA
     Dosage: 700 MG, QD
     Route: 048
     Dates: end: 20130207
  27. LITHIUM CARBONATE. [Concomitant]
     Active Substance: LITHIUM CARBONATE
     Indication: SCHIZOPHRENIA
     Dosage: 800 MG, QD
     Route: 048
     Dates: start: 20121228
  28. FLUNITRAZEPAM [Concomitant]
     Active Substance: FLUNITRAZEPAM
     Dosage: 1 MG, QD
     Route: 048
     Dates: start: 20130517, end: 20130606
  29. SYOSEIRYUTO [Concomitant]
     Active Substance: HERBALS
     Indication: PRODUCT USED FOR UNKNOWN INDICATION
     Dosage: 6 G, QD
     Route: 048
     Dates: start: 20140311, end: 20140320
  30. CLOZARIL [Suspect]
     Active Substance: CLOZAPINE
     Dosage: 300 MG, QD
     Route: 048
  31. LEUCON /00300201/ [Suspect]
     Active Substance: ADENINE
     Indication: NEUTROPHIL COUNT DECREASED
     Dosage: 20 MG, QD
     Route: 048
     Dates: start: 20130802
  32. QUAZEPAM. [Suspect]
     Active Substance: QUAZEPAM
     Dosage: 20 MG, QD
     Route: 048
     Dates: start: 20131121, end: 20140714
  33. LANDSEN [Suspect]
     Active Substance: CLONAZEPAM
     Indication: SCHIZOPHRENIA
     Dosage: 2 MG
     Route: 048
     Dates: start: 20130411, end: 20140320
  34. OLANZAPINE. [Concomitant]
     Active Substance: OLANZAPINE
     Indication: SCHIZOPHRENIA
     Dosage: 20 MG, QD
     Route: 048
     Dates: end: 20130207
  35. ESZOPICLONE. [Concomitant]
     Active Substance: ESZOPICLONE
     Indication: SCHIZOPHRENIA
     Dosage: 2 MG, QD
     Route: 048
     Dates: end: 20130130
  36. TRIHEXYPHENIDYL HYDROCHLORIDE. [Concomitant]
     Active Substance: TRIHEXYPHENIDYL HYDROCHLORIDE
     Indication: PARKINSON^S DISEASE
     Dosage: 4 MG, QD
     Route: 048
     Dates: end: 20130123
  37. DEPAS [Concomitant]
     Active Substance: ETIZOLAM
     Indication: SCHIZOPHRENIA
     Dosage: 3 MG, QD
     Route: 048
     Dates: start: 20140321, end: 20140403
  38. CLOZARIL [Suspect]
     Active Substance: CLOZAPINE
     Dosage: 150 MG, QD
     Route: 048
     Dates: start: 20130124, end: 20130126
  39. CLOZARIL [Suspect]
     Active Substance: CLOZAPINE
     Dosage: 175 MG, QD
     Route: 048
     Dates: start: 20130127, end: 20130129
  40. CLOZARIL [Suspect]
     Active Substance: CLOZAPINE
     Dosage: 275 MG, QD
     Route: 048
     Dates: start: 20141217, end: 20141224
  41. LIMAS [Suspect]
     Active Substance: LITHIUM CARBONATE
     Dosage: 700 MG, QD
     Route: 048
     Dates: start: 20130705, end: 20130711
  42. LANDSEN [Suspect]
     Active Substance: CLONAZEPAM
     Dosage: 2 MG, QD
     Route: 048
     Dates: start: 20140327
  43. SYOSEIRYUTO [Concomitant]
     Active Substance: HERBALS
     Dosage: 9 G, QD
     Route: 048
     Dates: start: 20140321
  44. CLOZARIL [Suspect]
     Active Substance: CLOZAPINE
     Dosage: 25 MG, QD
     Route: 048
     Dates: start: 20130111, end: 20130113
  45. CLOZARIL [Suspect]
     Active Substance: CLOZAPINE
     Dosage: 50 MG, QD
     Route: 048
     Dates: start: 20130114, end: 20130116
  46. CLOZARIL [Suspect]
     Active Substance: CLOZAPINE
     Dosage: 100 MG, QD
     Route: 048
     Dates: start: 20130119, end: 20130120
  47. CLOZARIL [Suspect]
     Active Substance: CLOZAPINE
     Dosage: 350 MG, QD
     Route: 048
     Dates: start: 20130503
  48. FLUNITRAZEPAM [Concomitant]
     Active Substance: FLUNITRAZEPAM
     Dosage: 2 MG, QD
     Route: 048
     Dates: start: 20140715
  49. CLOZARIL [Suspect]
     Active Substance: CLOZAPINE
     Indication: SCHIZOPHRENIA
     Dosage: 12.5 MG, QD
     Route: 048
     Dates: start: 20130110, end: 20130110
  50. CLOZARIL [Suspect]
     Active Substance: CLOZAPINE
     Dosage: 225 MG, QD
     Route: 048
     Dates: start: 20130222, end: 20130228
  51. CLOZARIL [Suspect]
     Active Substance: CLOZAPINE
     Dosage: 325 MG, QD
     Route: 048
     Dates: start: 20130419, end: 20130502
  52. CLOZARIL [Suspect]
     Active Substance: CLOZAPINE
     Dosage: 375 MG, QD
     Route: 048
     Dates: start: 20140808, end: 20141021
  53. CLOZARIL [Suspect]
     Active Substance: CLOZAPINE
     Dosage: 300 MG, QD
     Route: 048
     Dates: start: 20141119, end: 20141216
  54. HORIZON [Concomitant]
     Active Substance: DIAZEPAM
     Indication: SCHIZOPHRENIA
     Dosage: 5 MG, QD
     Route: 048
     Dates: start: 20130530, end: 20130530

REACTIONS (15)
  - Weight increased [Not Recovered/Not Resolved]
  - Leukocytosis [Recovered/Resolved]
  - Haemoglobin decreased [Recovered/Resolved]
  - Thirst [Not Recovered/Not Resolved]
  - Neutrophil count decreased [Recovered/Resolved]
  - Monocytosis [Recovered/Resolved]
  - Tremor [Recovering/Resolving]
  - Hyperglycaemia [Recovered/Resolved]
  - Salivary hypersecretion [Recovering/Resolving]
  - White blood cell count increased [Recovered/Resolved]
  - Extrapyramidal disorder [Recovering/Resolving]
  - Somnolence [Not Recovered/Not Resolved]
  - Lymphocyte percentage increased [Recovered/Resolved]
  - Polydipsia [Recovering/Resolving]
  - Neutrophil percentage decreased [Recovered/Resolved]

NARRATIVE: CASE EVENT DATE: 20130131
